FAERS Safety Report 24548521 (Version 2)
Quarter: 2024Q4

REPORT INFORMATION
  Report Type: Spontaneous
  Country: US (occurrence: US)
  Receive Date: 20241025
  Receipt Date: 20241107
  Transmission Date: 20250114
  Serious: Yes (Other)
  Sender: TEVA
  Company Number: US-TEVA-VS-3254227

PATIENT
  Age: 19 Year
  Sex: Male

DRUGS (2)
  1. ARSENIC TRIOXIDE [Suspect]
     Active Substance: ARSENIC TRIOXIDE
     Indication: Acute promyelocytic leukaemia
     Route: 065
  2. TRETINOIN [Suspect]
     Active Substance: TRETINOIN
     Indication: Acute promyelocytic leukaemia
     Dosage: ATRA (ALL-TRANS RETIONIC ACID)
     Route: 065

REACTIONS (3)
  - Periorbital cellulitis [Recovering/Resolving]
  - Febrile neutropenia [Recovering/Resolving]
  - Differentiation syndrome [Recovering/Resolving]
